FAERS Safety Report 13626854 (Version 1)
Quarter: 2017Q2

REPORT INFORMATION
  Report Type: Spontaneous
  Country: US (occurrence: US)
  Receive Date: 20170607
  Receipt Date: 20170607
  Transmission Date: 20170830
  Serious: No
  Sender: FDA-Public Use
  Company Number: None

PATIENT
  Age: 47 Year
  Sex: Female
  Weight: 98.1 kg

DRUGS (6)
  1. VITAMIN D3 [Concomitant]
     Active Substance: CHOLECALCIFEROL
  2. PROBIOTICS [Concomitant]
     Active Substance: PROBIOTICS NOS
  3. IBUPROFEN. [Concomitant]
     Active Substance: IBUPROFEN
  4. FAMOTIDINE. [Concomitant]
     Active Substance: FAMOTIDINE
  5. TUMS [Concomitant]
     Active Substance: CALCIUM CARBONATE
  6. BELVIQ [Suspect]
     Active Substance: LORCASERIN HYDROCHLORIDE
     Indication: OBESITY
     Dosage: ?          QUANTITY:1 TABLET(S);?
     Route: 048
     Dates: start: 20170515, end: 20170526

REACTIONS (3)
  - Increased appetite [None]
  - Headache [None]
  - Oedema [None]

NARRATIVE: CASE EVENT DATE: 20170526
